FAERS Safety Report 5525550-6 (Version None)
Quarter: 2007Q4

REPORT INFORMATION
  Report Type: 
  Country: None (occurrence: None)
  Receive Date: 20071126
  Receipt Date: 20071122
  Transmission Date: 20080405
  Serious: No
  Sender: FDA-Public Use
  Company Number: B0485950A

PATIENT
  Age: 52 Year
  Sex: Female
  Weight: 69 kg

DRUGS (4)
  1. ARIXTRA [Suspect]
     Indication: THROMBOSIS PROPHYLAXIS
     Dosage: 2.5MG PER DAY
     Route: 058
     Dates: start: 20070815, end: 20070815
  2. FLUMARIN [Concomitant]
     Dosage: 2G PER DAY
     Route: 042
     Dates: start: 20070810
  3. LOXONIN [Concomitant]
     Route: 042
     Dates: start: 20070815
  4. MUCOSTA [Concomitant]
     Route: 042
     Dates: start: 20070815

REACTIONS (2)
  - HAEMORRHOIDAL HAEMORRHAGE [None]
  - POST PROCEDURAL SWELLING [None]
